FAERS Safety Report 4289767-3 (Version None)
Quarter: 2004Q1

REPORT INFORMATION
  Report Type: 
  Country: None (occurrence: None)
  Receive Date: 20040209
  Receipt Date: 20040126
  Transmission Date: 20041129
  Serious: Yes (Other)
  Sender: FDA-Public Use
  Company Number: 200410675US

PATIENT
  Age: 10 Year
  Sex: Male

DRUGS (1)
  1. DESMOPRESSIN (DDAVP) TABLETS [Suspect]
     Indication: ENURESIS
     Dosage: 0.2 MG QD PO
     Route: 048
     Dates: end: 20031201

REACTIONS (3)
  - BRAIN NEOPLASM [None]
  - CSF TEST ABNORMAL [None]
  - HEADACHE [None]
